FAERS Safety Report 7632421-8 (Version None)
Quarter: 2011Q3

REPORT INFORMATION
  Report Type: 
  Country: None (occurrence: None)
  Receive Date: 20110725
  Receipt Date: 20100901
  Transmission Date: 20111222
  Serious: No
  Sender: FDA-Public Use
  Company Number: US-BRISTOL-MYERS SQUIBB COMPANY-15266331

PATIENT
  Age: 60 Year
  Sex: Female

DRUGS (12)
  1. CLONIDINE [Concomitant]
  2. METOPROLOL TARTRATE [Concomitant]
  3. COUMADIN [Suspect]
  4. ATENOLOL [Concomitant]
  5. LOVASTATIN [Concomitant]
  6. MULTI-VITAMIN [Concomitant]
     Dosage: MULTIVITAMIN SUPPLEMENT
  7. RANITIDINE [Concomitant]
  8. PLAVIX [Concomitant]
  9. ASPIRIN [Concomitant]
     Dosage: ASPIRIN EC
  10. FUROSEMIDE [Concomitant]
  11. OYSTER SHELL CALCIUM [Concomitant]
  12. COZAAR [Concomitant]

REACTIONS (1)
  - CONTUSION [None]
